FAERS Safety Report 10152897 (Version 2)
Quarter: 2014Q2

REPORT INFORMATION
  Report Type: Spontaneous
  Country: US (occurrence: US)
  Receive Date: 20140505
  Receipt Date: 20140516
  Transmission Date: 20141212
  Serious: Yes (Death)
  Sender: FDA-Public Use
  Company Number: US-GLAXOSMITHKLINE-A1071103A

PATIENT
  Sex: Female

DRUGS (1)
  1. TYKERB [Suspect]
     Indication: NEOPLASM MALIGNANT
     Dosage: 1000MG PER DAY
     Route: 065

REACTIONS (1)
  - Death [Fatal]
